FAERS Safety Report 23824854 (Version 2)
Quarter: 2025Q1

REPORT INFORMATION
  Report Type: Spontaneous
  Country: BR (occurrence: BR)
  Receive Date: 20240507
  Receipt Date: 20250123
  Transmission Date: 20250408
  Serious: Yes (Other)
  Sender: CELLTRION
  Company Number: BR-CELLTRION INC.-2024BR010230

PATIENT

DRUGS (3)
  1. INFLIXIMAB [Suspect]
     Active Substance: INFLIXIMAB
     Indication: Product used for unknown indication
     Dosage: UNK, Q4WEEKS
     Route: 042
     Dates: start: 20240304
  2. INFLIXIMAB [Suspect]
     Active Substance: INFLIXIMAB
     Dosage: UNK, Q4WEEKS
     Route: 042
     Dates: start: 20240422
  3. INFLIXIMAB [Suspect]
     Active Substance: INFLIXIMAB
     Dosage: UNK, Q4WEEKS
     Route: 042
     Dates: start: 20240522

REACTIONS (3)
  - Inflammatory bowel disease [Unknown]
  - Abdominal pain [Unknown]
  - Therapy interrupted [Unknown]
